FAERS Safety Report 8619501-5 (Version None)
Quarter: 2012Q3

REPORT INFORMATION
  Report Type: 
  Country: None (occurrence: None)
  Receive Date: 20120824
  Receipt Date: 20120425
  Transmission Date: 20120928
  Serious: No
  Sender: FDA-Public Use
  Company Number: US-ASTRAZENECA-2012SE20857

PATIENT
  Age: 56 Year
  Sex: Female

DRUGS (1)
  1. SYMBICORT [Suspect]
     Indication: DYSPNOEA
     Dosage: 160/4.5 60 INHALATIONS, TWO PUFFS EVERY 12 HOURS
     Route: 055
     Dates: start: 20120323

REACTIONS (3)
  - HEADACHE [None]
  - OFF LABEL USE [None]
  - DRUG DISPENSING ERROR [None]
